FAERS Safety Report 4828612-1 (Version None)
Quarter: 2005Q4

REPORT INFORMATION
  Report Type: 
  Country: None (occurrence: None)
  Receive Date: 20051014
  Receipt Date: 20050629
  Transmission Date: 20060501
  Serious: No
  Sender: FDA-Public Use
  Company Number: 2005SP001665

PATIENT
  Age: 77 Year
  Sex: Female
  Weight: 106.5953 kg

DRUGS (16)
  1. LUNESTA [Suspect]
     Indication: SLEEP APNOEA SYNDROME
     Dosage: 2 MG;HS;ORAL
     Route: 048
     Dates: start: 20050601, end: 20050101
  2. DIGITEK [Concomitant]
  3. COREG [Concomitant]
  4. SYSTANE [Concomitant]
  5. DIOVANE [Concomitant]
  6. METFORMIN HCL [Concomitant]
  7. ATORVASTATIN CALCIUM [Concomitant]
  8. ADVAIR DISKUS 100/50 [Concomitant]
  9. TIOTROPIUM [Concomitant]
  10. RANITIDINE [Concomitant]
  11. LEVOTHROID [Concomitant]
  12. MECLIZINE [Concomitant]
  13. PRAMIPEXOLE DIHYDROCHLORIDE [Concomitant]
  14. RHINOCORT [Concomitant]
  15. PIOGLITAZONE HCL [Concomitant]
  16. GABAPENTIN [Concomitant]

REACTIONS (1)
  - DYSGEUSIA [None]
